FAERS Safety Report 6643957-0 (Version None)
Quarter: 2010Q1

REPORT INFORMATION
  Report Type: 
  Country: None (occurrence: None)
  Receive Date: 20100322
  Receipt Date: 20100311
  Transmission Date: 20100710
  Serious: Yes (Hospitalization)
  Sender: FDA-Public Use
  Company Number: FR-BRISTOL-MYERS SQUIBB COMPANY-15022007

PATIENT
  Age: 62 Year
  Sex: Female

DRUGS (1)
  1. GLUCOPHAGE [Suspect]
     Indication: DIABETES MELLITUS
     Dosage: 9DEC09-15DEC:1000MG DOSE INCREASED FROM 15DEC09-20DEC09: 850MG[2 IN 1 D]
     Route: 048
     Dates: start: 20091209, end: 20091220

REACTIONS (1)
  - LEUKOCYTOCLASTIC VASCULITIS [None]
